FAERS Safety Report 10533649 (Version 2)
Quarter: 2014Q4

REPORT INFORMATION
  Report Type: Spontaneous
  Country: DE (occurrence: DE)
  Receive Date: 20141022
  Receipt Date: 20141118
  Transmission Date: 20150529
  Serious: Yes (Other)
  Sender: FDA-Public Use
  Company Number: DE-ABBVIE-14P-062-1298066-00

PATIENT
  Age: 11 Month
  Sex: Female

DRUGS (2)
  1. CLONAZEPAM. [Concomitant]
     Active Substance: CLONAZEPAM
     Indication: EPILEPSY
  2. VALPROIC ACID. [Suspect]
     Active Substance: VALPROIC ACID
     Indication: EPILEPSY
     Route: 065

REACTIONS (5)
  - Lethargy [Recovered/Resolved]
  - Seizure [Recovered/Resolved]
  - Hyperammonaemia [Recovered/Resolved]
  - Stupor [Recovered/Resolved]
  - Hypotonia [Recovered/Resolved]
